FAERS Safety Report 17568402 (Version 2)
Quarter: 2020Q2

REPORT INFORMATION
  Report Type: Spontaneous
  Country: AU (occurrence: AU)
  Receive Date: 20200320
  Receipt Date: 20200403
  Transmission Date: 20200713
  Serious: Yes (Other)
  Sender: FDA-Public Use
  Company Number: AU-ASCEND THERAPEUTICS US, LLC-2081839

PATIENT
  Age: 54 Year
  Sex: Female

DRUGS (7)
  1. ESTROGEL [Suspect]
     Active Substance: ESTRADIOL
     Indication: PRODUCT USED FOR UNKNOWN INDICATION
  2. HARMONY MENOPAUSE (HERBALS\MINERALS\VITAMINS) [Concomitant]
     Active Substance: HERBALS\MINERALS\VITAMINS
  3. ESTALIS (ESTRADIOL, NORETHISTERONE ACETATE) UNKNOWN?INDICATION FOR USE [Suspect]
     Active Substance: ESTRADIOL\NORETHINDRONE ACETATE
     Dates: start: 201901
  4. TEMAZEPAM. [Concomitant]
     Active Substance: TEMAZEPAM
  5. MULTIVITAMIN (VITAMINS NOS), UNKNOWN?VITAMIN B12 [Concomitant]
  6. NORETHISTERONE ACETATE (NORETHISTERONE ACETATE) UNKNOWN?INDICATION FOR [Suspect]
     Active Substance: NORETHINDRONE ACETATE
  7. CARAFATE [Concomitant]
     Active Substance: SUCRALFATE

REACTIONS (2)
  - Morbid thoughts [Unknown]
  - Suicidal ideation [Recovered/Resolved]
